FAERS Safety Report 16965688 (Version 1)
Quarter: 2019Q4

REPORT INFORMATION
  Report Type: Spontaneous
  Country: IT (occurrence: IT)
  Receive Date: 20191028
  Receipt Date: 20191028
  Transmission Date: 20200122
  Serious: Yes (Hospitalization, Other)
  Sender: FDA-Public Use
  Company Number: IT-HORIZON-PRE-0479-2019

PATIENT
  Age: 77 Year
  Sex: Male

DRUGS (2)
  1. PREDNISONE. [Suspect]
     Active Substance: PREDNISONE
     Indication: HAEMOPHILIA
  2. CYCLOPHOSPHAMIDE. [Suspect]
     Active Substance: CYCLOPHOSPHAMIDE
     Indication: HAEMOPHILIA

REACTIONS (4)
  - Infection [Unknown]
  - Enterococcal sepsis [Unknown]
  - Thrombosis [Unknown]
  - Joint dislocation [Unknown]

NARRATIVE: CASE EVENT DATE: 201802
